FAERS Safety Report 13526117 (Version 1)
Quarter: 2017Q2

REPORT INFORMATION
  Report Type: Spontaneous
  Country: US (occurrence: US)
  Receive Date: 20170508
  Receipt Date: 20170508
  Transmission Date: 20170830
  Serious: No
  Sender: FDA-Public Use
  Company Number: None

PATIENT
  Sex: Female

DRUGS (8)
  1. EXEMESTANE. [Suspect]
     Active Substance: EXEMESTANE
     Indication: VITAMIN D DEFICIENCY
     Route: 048
     Dates: start: 20160114
  2. BAYER ASPIRIN [Concomitant]
     Active Substance: ASPIRIN
  3. IMDUR [Concomitant]
     Active Substance: ISOSORBIDE MONONITRATE
  4. MAGNESIUM [Concomitant]
     Active Substance: MAGNESIUM
  5. MAG OXIDE [Concomitant]
     Active Substance: MAGNESIUM OXIDE
  6. XANAX [Concomitant]
     Active Substance: ALPRAZOLAM
  7. EXEMESTANE. [Suspect]
     Active Substance: EXEMESTANE
     Indication: BREAST CANCER FEMALE
     Route: 048
     Dates: start: 20160114
  8. POTASSIUM [Concomitant]
     Active Substance: POTASSIUM

REACTIONS (1)
  - Lung neoplasm malignant [None]
